FAERS Safety Report 7186125-9 (Version None)
Quarter: 2010Q4

REPORT INFORMATION
  Report Type: 
  Country: None (occurrence: None)
  Receive Date: 20101222
  Receipt Date: 20101215
  Transmission Date: 20110411
  Serious: Yes (Life-Threatening, Hospitalization)
  Sender: FDA-Public Use
  Company Number: CA-BAXTER-2010BH030467

PATIENT
  Age: 60 Year
  Sex: Female

DRUGS (9)
  1. GAMMAGARD LIQUID [Suspect]
     Indication: ACCIDENTAL EXPOSURE
     Route: 065
     Dates: start: 20101215, end: 20101215
  2. GAMMAGARD LIQUID [Suspect]
     Route: 065
     Dates: start: 20101216, end: 20101216
  3. 3,4-DIAMINOPYRIDINE [Concomitant]
  4. PREDNISONE [Concomitant]
     Route: 048
  5. AZATHIOPRINE [Concomitant]
     Route: 048
  6. LEVOTHYROXINE [Concomitant]
     Route: 048
  7. TOLTERODINE TARTRATE [Concomitant]
  8. SALBUTAMOL [Concomitant]
  9. IMMUNE GLOBULIN INTRAVENOUS (HUMAN) [Concomitant]
     Indication: MYASTHENIC SYNDROME

REACTIONS (2)
  - ALLERGIC TRANSFUSION REACTION [None]
  - WRONG DRUG ADMINISTERED [None]
